FAERS Safety Report 4708376-2 (Version None)
Quarter: 2005Q3

REPORT INFORMATION
  Report Type: 
  Country: None (occurrence: None)
  Receive Date: 20050707
  Receipt Date: 20041019
  Transmission Date: 20060218
  Serious: Yes (Hospitalization)
  Sender: FDA-Public Use
  Company Number: CA-ROCHE-383692

PATIENT
  Age: 44 Year
  Sex: Female
  Weight: 66.4 kg

DRUGS (8)
  1. PEG-INTERFERON ALFA 2A (RO 25-8310) [Suspect]
     Route: 058
     Dates: start: 20040615, end: 20040928
  2. RIBAVIRIN [Suspect]
     Route: 048
     Dates: start: 20040615, end: 20040929
  3. ELTROXIN [Concomitant]
     Dates: start: 20040609
  4. FERROUS GLUCONATE [Concomitant]
     Dates: start: 20030415
  5. PREDNISOLONE [Concomitant]
     Dates: start: 20040709, end: 20040712
  6. GRAVOL TAB [Concomitant]
     Dates: start: 20040215
  7. AXID [Concomitant]
     Dates: start: 20030415
  8. SULFATRIM [Concomitant]
     Dates: start: 20040709, end: 20040718

REACTIONS (2)
  - MYALGIA [None]
  - POLYARTHRITIS [None]
